FAERS Safety Report 9028542 (Version 4)
Quarter: 2013Q4

REPORT INFORMATION
  Report Type: Report from Study
  Country: BR (occurrence: BR)
  Receive Date: 20130124
  Receipt Date: 20131025
  Transmission Date: 20140711
  Serious: Yes (Disabling, Other)
  Sender: FDA-Public Use
  Company Number: BR-ROCHE-1173346

PATIENT
  Sex: Female
  Weight: 98 kg

DRUGS (8)
  1. ACTEMRA [Suspect]
     Indication: RHEUMATOID ARTHRITIS
     Route: 065
     Dates: start: 20100901
  2. ACTEMRA [Suspect]
     Route: 065
     Dates: start: 20101001, end: 20120201
  3. HUMIRA [Concomitant]
  4. PREDNISONE [Concomitant]
     Indication: PAIN
  5. SPIRONOLACTONE [Concomitant]
  6. NEURAL [Concomitant]
  7. AMLODIPINE BESYLATE [Concomitant]
  8. OMEPRAZOLE [Concomitant]

REACTIONS (7)
  - Osteoarthritis [Not Recovered/Not Resolved]
  - Renal impairment [Not Recovered/Not Resolved]
  - Renal disorder [Unknown]
  - Back pain [Not Recovered/Not Resolved]
  - Gait disturbance [Not Recovered/Not Resolved]
  - Pain [Not Recovered/Not Resolved]
  - Anaemia [Not Recovered/Not Resolved]
